FAERS Safety Report 9082221 (Version 1)
Quarter: 2013Q1

REPORT INFORMATION
  Report Type: Spontaneous
  Country: FR (occurrence: FR)
  Receive Date: 20130131
  Receipt Date: 20130131
  Transmission Date: 20140127
  Serious: Yes (Hospitalization)
  Sender: FDA-Public Use
  Company Number: FR-009507513-1301FRA010501

PATIENT
  Age: 55 Year
  Sex: Male

DRUGS (15)
  1. TIENAM 500MG/500MG, POUDRE POUR PERFUSION [Suspect]
     Dosage: UNK
     Dates: start: 20120307
  2. CIFLOX [Suspect]
     Dosage: UNK
     Dates: start: 20120227
  3. TAZOCILLINE [Suspect]
     Dosage: UNK
     Dates: start: 20120227
  4. TRIFLUCAN [Suspect]
     Dosage: UNK
     Dates: start: 20120307
  5. AMIKACIN [Suspect]
     Dosage: UNK
     Dates: start: 20120307
  6. ZYVOXID [Suspect]
     Dosage: UNK
     Dates: start: 20120307
  7. VANCOMYCIN [Suspect]
     Dosage: UNK
     Dates: start: 20120316, end: 20120331
  8. VANCOMYCIN [Suspect]
     Dosage: UNK
     Dates: start: 20120406, end: 20120428
  9. GENTAMICINE [Suspect]
     Dosage: UNK
     Dates: start: 20120316
  10. COLIMYCINE [Suspect]
     Dosage: UNK
     Dates: start: 20120316, end: 2012
  11. COLIMYCINE [Suspect]
     Dosage: UNK
     Dates: start: 20120406, end: 20120428
  12. CANCIDAS [Suspect]
     Dosage: UNK
     Dates: start: 20120406, end: 201204
  13. MEROPENEM [Suspect]
     Dosage: UNK
     Dates: start: 20120406, end: 20120428
  14. RIFADIN [Suspect]
     Dosage: UNK
     Dates: start: 20120406, end: 20120428
  15. AXEPIM [Suspect]
     Dosage: UNK
     Dates: start: 2012

REACTIONS (1)
  - Acquired haemophilia [Unknown]
